FAERS Safety Report 18612649 (Version 7)
Quarter: 2021Q2

REPORT INFORMATION
  Report Type: Spontaneous
  Country: CN (occurrence: CN)
  Receive Date: 20201214
  Receipt Date: 20210618
  Transmission Date: 20210717
  Serious: Yes (Hospitalization, Other)
  Sender: FDA-Public Use
  Company Number: CN-SA-2020SA354959

PATIENT
  Age: 74 Year
  Sex: Female
  Weight: 60 kg

DRUGS (6)
  1. LANTUS [Suspect]
     Active Substance: INSULIN GLARGINE
     Dosage: 23 IU, QD
     Route: 065
  2. GLIMEPIRIDE. [Concomitant]
     Active Substance: GLIMEPIRIDE
     Dosage: 1 TABLET, QD
     Route: 065
  3. LANTUS [Suspect]
     Active Substance: INSULIN GLARGINE
     Indication: DIABETES MELLITUS
     Dosage: UNK
     Route: 065
  4. LANTUS [Suspect]
     Active Substance: INSULIN GLARGINE
     Dosage: 24?25 UNITS
     Route: 065
  5. ACARBOSE. [Concomitant]
     Active Substance: ACARBOSE
     Dosage: 1 TABLET, TID
     Route: 065
  6. LANTUS [Suspect]
     Active Substance: INSULIN GLARGINE
     Dosage: 20 IU, QD
     Route: 065
     Dates: start: 2020

REACTIONS (9)
  - Diabetes mellitus [Recovering/Resolving]
  - Device issue [Recovered/Resolved]
  - Pain in extremity [Unknown]
  - Blood glucose increased [Recovering/Resolving]
  - Drooling [Recovering/Resolving]
  - Speech disorder [Recovering/Resolving]
  - Blood glucose abnormal [Recovered/Resolved]
  - Skin ulcer [Recovering/Resolving]
  - Hypertension [Recovering/Resolving]

NARRATIVE: CASE EVENT DATE: 2017
